FAERS Safety Report 18098436 (Version 2)
Quarter: 2020Q3

REPORT INFORMATION
  Report Type: Spontaneous
  Country: US (occurrence: US)
  Receive Date: 20200731
  Receipt Date: 20200804
  Transmission Date: 20201103
  Serious: No
  Sender: FDA-Public Use
  Company Number: US-PFIZER INC-2020290941

PATIENT
  Age: 85 Year
  Sex: Male
  Weight: 78.02 kg

DRUGS (3)
  1. ESBRIET [Concomitant]
     Active Substance: PIRFENIDONE
     Indication: IDIOPATHIC PULMONARY FIBROSIS
     Dosage: 801 MG, 3X/DAY
     Route: 048
  2. VYNDAMAX [Suspect]
     Active Substance: TAFAMIDIS
     Indication: CARDIAC AMYLOIDOSIS
     Dosage: 61 MG, DAILY
     Route: 048
     Dates: start: 20200625
  3. VYNDAMAX [Suspect]
     Active Substance: TAFAMIDIS
     Indication: DYSPNOEA

REACTIONS (1)
  - Drug ineffective [Unknown]
